FAERS Safety Report 11899304 (Version 1)
Quarter: 2016Q1

REPORT INFORMATION
  Report Type: Spontaneous
  Country: US (occurrence: US)
  Receive Date: 20160108
  Receipt Date: 20160108
  Transmission Date: 20160526
  Serious: No
  Sender: FDA-Public Use
  Company Number: US-SA-2015SA160283

PATIENT
  Age: 65 Year
  Sex: Female

DRUGS (7)
  1. AFREZZA [Suspect]
     Active Substance: INSULIN HUMAN
     Indication: TYPE 1 DIABETES MELLITUS
     Dosage: FORM: POWDER
     Route: 055
     Dates: start: 20150908
  2. LANTUS SOLOSTAR [Concomitant]
     Active Substance: INSULIN GLARGINE
     Dosage: DOSE:7 UNIT(S)
  3. AFREZZA [Suspect]
     Active Substance: INSULIN HUMAN
     Indication: TYPE 1 DIABETES MELLITUS
     Dosage: FORM: POWDER
     Route: 055
     Dates: start: 20150908
  4. AFREZZA [Suspect]
     Active Substance: INSULIN HUMAN
     Indication: TYPE 1 DIABETES MELLITUS
     Dosage: FORM: POWDER
     Route: 055
     Dates: start: 20150908
  5. SYNTHROID [Concomitant]
     Active Substance: LEVOTHYROXINE SODIUM
     Indication: THYROID DISORDER
  6. AFREZZA [Suspect]
     Active Substance: INSULIN HUMAN
     Indication: TYPE 1 DIABETES MELLITUS
     Dosage: FORM: POWDER
     Route: 055
     Dates: start: 20150908
  7. NOVOLOG [Concomitant]
     Active Substance: INSULIN ASPART
     Dosage: 2.5 FOR BREAKFAST, 5 FOR LUNCH, AND 6 FOR DINNER

REACTIONS (2)
  - Blood glucose fluctuation [Recovered/Resolved]
  - Drug ineffective [Unknown]

NARRATIVE: CASE EVENT DATE: 20150908
